FAERS Safety Report 9666992 (Version 1)
Quarter: 2013Q4

REPORT INFORMATION
  Report Type: Spontaneous
  Country: US (occurrence: US)
  Receive Date: 20131104
  Receipt Date: 20131104
  Transmission Date: 20140711
  Serious: No
  Sender: FDA-Public Use
  Company Number: US-BIOGENIDEC-2013BI088671

PATIENT
  Sex: Female

DRUGS (7)
  1. TECFIDERA [Suspect]
     Indication: MULTIPLE SCLEROSIS
     Route: 048
     Dates: start: 20110405
  2. CALCIUM +D [Concomitant]
  3. HYDROCODONE-ACETAMINOPHEN [Concomitant]
  4. LAMICTAL [Concomitant]
  5. LEXAPRO [Concomitant]
  6. LORATADINE [Concomitant]
  7. MULTIVITAMINS [Concomitant]

REACTIONS (2)
  - Dysgeusia [Unknown]
  - Flushing [Unknown]
